FAERS Safety Report 7609335-2 (Version None)
Quarter: 2011Q3

REPORT INFORMATION
  Report Type: 
  Country: None (occurrence: None)
  Receive Date: 20110714
  Receipt Date: 20110703
  Transmission Date: 20111222
  Serious: Yes (Other)
  Sender: FDA-Public Use
  Company Number: PHHY2011FR60050

PATIENT
  Sex: Female

DRUGS (1)
  1. ZOLEDRONIC ACID [Suspect]

REACTIONS (4)
  - OSTEONECROSIS OF JAW [None]
  - BONE DISORDER [None]
  - BONE PAIN [None]
  - HYPERCALCAEMIA [None]
